FAERS Safety Report 18865833 (Version 3)
Quarter: 2022Q1

REPORT INFORMATION
  Report Type: Spontaneous
  Country: US (occurrence: US)
  Receive Date: 20210208
  Receipt Date: 20220301
  Transmission Date: 20220423
  Serious: Yes (Hospitalization, Other)
  Sender: FDA-Public Use
  Company Number: US-PFIZER INC-2021104812

PATIENT
  Age: 80 Year
  Sex: Male

DRUGS (1)
  1. XELJANZ [Suspect]
     Active Substance: TOFACITINIB CITRATE
     Indication: Rheumatoid arthritis
     Dosage: 5 MG, 2X/DAY
     Route: 048
     Dates: start: 202012

REACTIONS (5)
  - Osteomyelitis [Recovered/Resolved]
  - Rheumatoid arthritis [Recovered/Resolved]
  - Leg amputation [Unknown]
  - Drug ineffective [Unknown]
  - Product dose omission issue [Unknown]
